FAERS Safety Report 16828691 (Version 2)
Quarter: 2019Q4

REPORT INFORMATION
  Report Type: Spontaneous
  Country: US (occurrence: US)
  Receive Date: 20190919
  Receipt Date: 20191230
  Transmission Date: 20200122
  Serious: Yes (Other)
  Sender: FDA-Public Use
  Company Number: US-CHIESI USA, INC.-US-2019CHI000348

PATIENT

DRUGS (2)
  1. BETHKIS [Suspect]
     Active Substance: TOBRAMYCIN
     Indication: UPPER RESPIRATORY TRACT INFECTION
     Dosage: 300 MG, BID
     Route: 055
     Dates: start: 20190906, end: 20190921
  2. BETHKIS [Suspect]
     Active Substance: TOBRAMYCIN
     Indication: OFF LABEL USE

REACTIONS (3)
  - Pneumonia [Unknown]
  - Inappropriate schedule of product administration [Unknown]
  - Off label use [Unknown]

NARRATIVE: CASE EVENT DATE: 201909
